FAERS Safety Report 6191795-8 (Version None)
Quarter: 2009Q2

REPORT INFORMATION
  Report Type: 
  Country: None (occurrence: None)
  Receive Date: 20090515
  Receipt Date: 20090513
  Transmission Date: 20091009
  Serious: Yes (Hospitalization, Other)
  Sender: FDA-Public Use
  Company Number: PHHO2007TW03764

PATIENT
  Sex: Female
  Weight: 40 kg

DRUGS (8)
  1. AMN107 AMN+CAP [Suspect]
     Indication: CHRONIC MYELOID LEUKAEMIA
     Dosage: UNK
     Route: 048
     Dates: start: 20070125, end: 20070222
  2. AMN107 AMN+CAP [Suspect]
     Dosage: NO TREATMENT
     Dates: start: 20070223, end: 20070302
  3. AMN107 AMN+CAP [Suspect]
     Dates: start: 20070303, end: 20070304
  4. MAGNESIUM OXIDE [Concomitant]
     Indication: CONSTIPATION
  5. AMPICILLIN [Concomitant]
     Indication: GINGIVITIS
  6. BUSCOPAN [Concomitant]
     Indication: ABDOMINAL TENDERNESS
  7. CHLORHEXIDINE GLUCONATE [Concomitant]
     Indication: GINGIVITIS
  8. NYSTATIN [Concomitant]
     Indication: GINGIVITIS

REACTIONS (18)
  - BLINDNESS [None]
  - BLOOD POTASSIUM ABNORMAL [None]
  - COAGULATION TIME PROLONGED [None]
  - DYSURIA [None]
  - ELECTROCARDIOGRAM QT PROLONGED [None]
  - ELECTROCARDIOGRAM T WAVE INVERSION [None]
  - FEBRILE NEUTROPENIA [None]
  - GINGIVAL BLEEDING [None]
  - GRAND MAL CONVULSION [None]
  - HEADACHE [None]
  - HYPERTENSIVE ENCEPHALOPATHY [None]
  - NAUSEA [None]
  - PANCYTOPENIA [None]
  - PNEUMONIA KLEBSIELLA [None]
  - PYREXIA [None]
  - URINE ANALYSIS ABNORMAL [None]
  - VISION BLURRED [None]
  - VOMITING [None]
